FAERS Safety Report 5712996-6 (Version None)
Quarter: 2008Q2

REPORT INFORMATION
  Report Type: 
  Country: None (occurrence: None)
  Receive Date: 20080422
  Receipt Date: 20080421
  Transmission Date: 20081010
  Serious: Yes (Death, Hospitalization, Other)
  Sender: FDA-Public Use
  Company Number: CA-BRISTOL-MYERS SQUIBB COMPANY-14159032

PATIENT
  Age: 67 Year
  Sex: Female

DRUGS (5)
  1. METOPROLOL TARTRATE [Interacting]
  2. WARFARIN SODIUM [Suspect]
  3. TIAZAC [Interacting]
  4. LOSARTAN POTASSIUM [Suspect]
  5. CLODRONIC ACID [Suspect]

REACTIONS (3)
  - CARDIOGENIC SHOCK [None]
  - DEATH [None]
  - DRUG INTERACTION [None]
